FAERS Safety Report 15905268 (Version 1)
Quarter: 2019Q1

REPORT INFORMATION
  Report Type: Spontaneous
  Country: IR (occurrence: IR)
  Receive Date: 20190204
  Receipt Date: 20190204
  Transmission Date: 20190417
  Serious: Yes (Hospitalization, Other)
  Sender: FDA-Public Use
  Company Number: IR-MACLEODS PHARMACEUTICALS US LTD-MAC2019019885

PATIENT

DRUGS (3)
  1. BIPERIDEN [Suspect]
     Active Substance: BIPERIDEN
     Indication: MANIA
     Dosage: 4 MILLIGRAM, QD
     Route: 065
  2. QUETIAPINE. [Suspect]
     Active Substance: QUETIAPINE
     Indication: MANIA
     Dosage: 600 MILLIGRAM, QD
     Route: 065
  3. LITHIUM CARBONATE. [Suspect]
     Active Substance: LITHIUM CARBONATE
     Indication: MANIA
     Dosage: UP TO 1200 MG/DAY WITH 1 MG/DL OF SERUM LEVEL
     Route: 065

REACTIONS (1)
  - Catatonia [Recovered/Resolved]
